FAERS Safety Report 5663828-6 (Version None)
Quarter: 2008Q1

REPORT INFORMATION
  Report Type: 
  Country: None (occurrence: None)
  Receive Date: 20080310
  Receipt Date: 20080220
  Transmission Date: 20080703
  Serious: Yes (Hospitalization)
  Sender: FDA-Public Use
  Company Number: 2008RR-13202

PATIENT
  Age: 35 Year
  Sex: Male

DRUGS (1)
  1. ZIDOVUDINE TABLETS (ZIDOVUDINE) UNKNOWN [Suspect]
     Indication: PROPHYLAXIS
     Dosage: 20 MG/KG, QID, ORAL
     Route: 048

REACTIONS (10)
  - ANAEMIA [None]
  - CARDIAC MURMUR [None]
  - DRUG TOXICITY [None]
  - FEEDING DISORDER [None]
  - GRANULOCYTE COUNT DECREASED [None]
  - LETHARGY [None]
  - OVERDOSE [None]
  - PYREXIA [None]
  - STAPHYLOCOCCAL SEPSIS [None]
  - WHITE BLOOD CELL COUNT DECREASED [None]
